FAERS Safety Report 8086524-7 (Version None)
Quarter: 2012Q1

REPORT INFORMATION
  Report Type: 
  Country: None (occurrence: None)
  Receive Date: 20120128
  Receipt Date: 20110504
  Transmission Date: 20120608
  Serious: No
  Sender: FDA-Public Use
  Company Number: US-ABBOTT-11P-163-0724079-00

PATIENT
  Weight: 77.18 kg

DRUGS (2)
  1. HUMIRA [Suspect]
     Dates: start: 20110301
  2. HUMIRA [Suspect]
     Indication: PSORIASIS
     Dosage: ON HOLD
     Dates: start: 20090101, end: 20101101

REACTIONS (4)
  - PSORIASIS [None]
  - ARTHRALGIA [None]
  - ARTHRITIS [None]
  - PLATELET COUNT DECREASED [None]
